FAERS Safety Report 5060491-2 (Version None)
Quarter: 2006Q2

REPORT INFORMATION
  Report Type: 
  Country: None (occurrence: None)
  Receive Date: 20060630
  Receipt Date: 20051003
  Transmission Date: 20061013
  Serious: Yes (Life-Threatening, Hospitalization)
  Sender: FDA-Public Use
  Company Number: VISP-PR-0509S-0487

PATIENT
  Age: 64 Year
  Sex: Female

DRUGS (3)
  1. VISIPAQUE [Suspect]
     Indication: DRUG USE FOR UNKNOWN INDICATION
     Dosage: 100 ML, SINGLE DOSE, I.V.
     Route: 042
     Dates: start: 20050927, end: 20050927
  2. VISIPAQUE [Suspect]
  3. VISIPAQUE [Suspect]

REACTIONS (2)
  - CARDIAC ARREST [None]
  - HYPERSENSITIVITY [None]
